FAERS Safety Report 17660681 (Version 2)
Quarter: 2020Q2

REPORT INFORMATION
  Report Type: Spontaneous
  Country: TR (occurrence: TR)
  Receive Date: 20200413
  Receipt Date: 20200414
  Transmission Date: 20200713
  Serious: Yes (Death)
  Sender: FDA-Public Use
  Company Number: TR-ABBVIE-20K-161-3361705-00

PATIENT
  Age: 50 Year

DRUGS (1)
  1. KALETRA [Suspect]
     Active Substance: LOPINAVIR\RITONAVIR
     Indication: CORONAVIRUS INFECTION
     Route: 048

REACTIONS (2)
  - Off label use [Unknown]
  - Coronavirus infection [Fatal]
